FAERS Safety Report 18532017 (Version 1)
Quarter: 2020Q4

REPORT INFORMATION
  Report Type: Spontaneous
  Country: US (occurrence: US)
  Receive Date: 20201123
  Receipt Date: 20201123
  Transmission Date: 20210114
  Serious: Yes (Death, Other)
  Sender: FDA-Public Use
  Company Number: US-DRREDDYS-USA/USA/20/0129256

PATIENT
  Sex: Female

DRUGS (21)
  1. METRONIDAZOLE. [Suspect]
     Active Substance: METRONIDAZOLE
     Indication: ANTIBIOTIC THERAPY
     Dosage: FIRST PHASE
  2. AZITHROMYCIN ANHYDROUS. [Suspect]
     Active Substance: AZITHROMYCIN ANHYDROUS
     Dosage: THIRD PHASE
  3. MEROPENEM. [Suspect]
     Active Substance: MEROPENEM
     Indication: ANTIBIOTIC THERAPY
     Dosage: SECOND PHASE HCT
  4. CIPROFLOXACIN. [Suspect]
     Active Substance: CIPROFLOXACIN
     Indication: ANTIBIOTIC THERAPY
     Dosage: ONE YEAR AFTER HCT
  5. CEFEPIME [Suspect]
     Active Substance: CEFEPIME HYDROCHLORIDE
     Indication: ANTIBIOTIC THERAPY
     Dosage: FIRST PHASE
  6. VANCOMYCIN [Suspect]
     Active Substance: VANCOMYCIN
     Dosage: 3ND PHASE OF HCT
  7. CEFEPIME [Suspect]
     Active Substance: CEFEPIME HYDROCHLORIDE
     Dosage: AFTER HCT
  8. COTRIMOXAZOLE [Suspect]
     Active Substance: SULFAMETHOXAZOLE\TRIMETHOPRIM
     Indication: ANTIBIOTIC THERAPY
  9. MEROPENEM. [Suspect]
     Active Substance: MEROPENEM
     Dosage: ONE YEAR AFTER HCT,
  10. CEFEPIME [Suspect]
     Active Substance: CEFEPIME HYDROCHLORIDE
     Dosage: SECOND PHASE
  11. CEFEPIME [Suspect]
     Active Substance: CEFEPIME HYDROCHLORIDE
     Dosage: HIRD PHASE AL2
  12. AZITHROMYCIN ANHYDROUS. [Suspect]
     Active Substance: AZITHROMYCIN ANHYDROUS
     Indication: ANTIBIOTIC THERAPY
     Dosage: FIRST PHASE
  13. AMIKACIN. [Suspect]
     Active Substance: AMIKACIN
     Indication: ANTIBIOTIC THERAPY
     Dosage: SECOND PHASE
  14. LEVOFLOXACIN TABLETS [Suspect]
     Active Substance: LEVOFLOXACIN
     Dosage: THIRD PHASE
  15. CEFEPIME [Suspect]
     Active Substance: CEFEPIME HYDROCHLORIDE
     Dosage: SECOND PHASE
  16. LEVOFLOXACIN TABLETS [Suspect]
     Active Substance: LEVOFLOXACIN
     Indication: ANTIBIOTIC THERAPY
     Dosage: FIRST PHASE
  17. LEVOFLOXACIN TABLETS [Suspect]
     Active Substance: LEVOFLOXACIN
     Dosage: THIRD PHASE
  18. VANCOMYCIN [Suspect]
     Active Substance: VANCOMYCIN
     Indication: ANTIBIOTIC THERAPY
  19. VANCOMYCIN [Suspect]
     Active Substance: VANCOMYCIN
     Dosage: 2ND PHASE OF HCT
  20. LEVOFLOXACIN TABLETS [Suspect]
     Active Substance: LEVOFLOXACIN
     Dosage: IN THE 33 DAYS BETWEEN AL1 ENDING AND HAEMATOPOIETIC CELL TRANSPLANTATION (HCT; SECOND PHASE) BEGIN
  21. AMIKACIN. [Suspect]
     Active Substance: AMIKACIN
     Dosage: ONE YEAR AFTER HCT

REACTIONS (2)
  - Dysbiosis [Fatal]
  - Clostridium difficile colitis [Fatal]
